FAERS Safety Report 13795170 (Version 3)
Quarter: 2017Q3

REPORT INFORMATION
  Report Type: Spontaneous
  Country: AU (occurrence: AU)
  Receive Date: 20170726
  Receipt Date: 20170905
  Transmission Date: 20171127
  Serious: Yes (Other)
  Sender: FDA-Public Use
  Company Number: PHHY2017AU108357

PATIENT
  Age: 67 Year
  Sex: Female

DRUGS (3)
  1. PANADOL [Concomitant]
     Active Substance: ACETAMINOPHEN
     Indication: HEADACHE
     Route: 065
  2. FUROSEMIDE SANDOZ [Suspect]
     Active Substance: FUROSEMIDE
     Indication: PRODUCT USED FOR UNKNOWN INDICATION
     Route: 065
  3. METOPROLOL SANDOZ [Suspect]
     Active Substance: METOPROLOL
     Indication: HEART RATE INCREASED
     Dosage: 50 MG, BID
     Route: 065

REACTIONS (24)
  - Abdominal distension [Unknown]
  - Thought blocking [Unknown]
  - Weight increased [Unknown]
  - Diarrhoea [Unknown]
  - Fatigue [Unknown]
  - Rash papular [Unknown]
  - Rhinorrhoea [Unknown]
  - Dyspnoea [Unknown]
  - Pelvic pain [Unknown]
  - Pain in extremity [Unknown]
  - Throat irritation [Not Recovered/Not Resolved]
  - Nausea [Unknown]
  - Arthralgia [Unknown]
  - Gastrointestinal sounds abnormal [Unknown]
  - Dry eye [Unknown]
  - Dry skin [Not Recovered/Not Resolved]
  - Constipation [Unknown]
  - Pallor [Unknown]
  - Syncope [Unknown]
  - Musculoskeletal pain [Unknown]
  - Acne [Unknown]
  - Swelling [Unknown]
  - Spinal pain [Unknown]
  - Vision blurred [Unknown]
